FAERS Safety Report 8095636-3 (Version None)
Quarter: 2012Q1

REPORT INFORMATION
  Report Type: 
  Country: None (occurrence: None)
  Receive Date: 20120129
  Receipt Date: 20111227
  Transmission Date: 20120608
  Serious: No
  Sender: FDA-Public Use
  Company Number: US-ABBOTT-11P-163-0887328-00

PATIENT
  Age: 34 Year
  Sex: Female

DRUGS (17)
  1. PREDNISONE TAB [Concomitant]
     Indication: PRODUCT USED FOR UNKNOWN INDICATION
     Dosage: 20 MG DAILY
  2. IMODIUM [Concomitant]
     Indication: DIARRHOEA
     Dosage: 2MG Q6H PRN
  3. LOMOTIL [Concomitant]
     Indication: DIARRHOEA
     Dosage: 1 TAB Q4H PRN; MAX 4X/DAY
  4. HUMIRA [Suspect]
     Indication: COLITIS ULCERATIVE
     Route: 058
     Dates: start: 20111101, end: 20111201
  5. HUMIRA [Suspect]
     Indication: COLITIS ULCERATIVE
     Dates: start: 20111201
  6. SLOW FE [Concomitant]
     Indication: PRODUCT USED FOR UNKNOWN INDICATION
     Dosage: 45 MG EVERY OTHER DAY
  7. DICYCLOMINE [Concomitant]
     Indication: ABDOMINAL RIGIDITY
  8. FOLIC ACID [Concomitant]
     Indication: ANAEMIA
     Dosage: 1 MG DAILY
  9. MULTI-VITAMIN [Concomitant]
     Indication: PRODUCT USED FOR UNKNOWN INDICATION
     Dosage: DAILY
  10. TRAMADOL HCL [Concomitant]
     Indication: PAIN
     Dosage: 50MG Q6H PRN
  11. LISINOPRIL [Concomitant]
     Indication: BLOOD PRESSURE
     Dosage: 20 MG DAILY
  12. ZANTAC [Concomitant]
     Indication: PRODUCT USED FOR UNKNOWN INDICATION
     Dosage: 150 MG QHS
  13. EXTRA STRENGTH TYLENOL [Concomitant]
     Indication: PRODUCT USED FOR UNKNOWN INDICATION
     Dosage: 1 TO 2 Q6H PRN
  14. SIMVASTATIN [Concomitant]
     Indication: BLOOD CHOLESTEROL
     Dosage: 20 MG DAILY
  15. VITAMIN D [Concomitant]
     Indication: PRODUCT USED FOR UNKNOWN INDICATION
     Dosage: 2000 UNITS DAILY
  16. FISH OIL [Concomitant]
     Indication: PRODUCT USED FOR UNKNOWN INDICATION
     Dosage: DAILY
  17. DICYCLOMINE [Concomitant]
     Indication: ABDOMINAL PAIN
     Dosage: 10 MG QID PRN

REACTIONS (5)
  - CONTINUOUS POSITIVE AIRWAY PRESSURE [None]
  - INJECTION SITE PAIN [None]
  - INJECTION SITE HAEMATOMA [None]
  - SLEEP APNOEA SYNDROME [None]
  - UTERINE DILATION AND CURETTAGE [None]
